FAERS Safety Report 8881823 (Version 3)
Quarter: 2012Q4

REPORT INFORMATION
  Report Type: 
  Country: US (occurrence: US)
  Receive Date: 20121101
  Receipt Date: 20121109
  Transmission Date: 20130627
  Serious: No
  Sender: FDA-Public Use
  Company Number: US-PFIZER INC-2012269477

PATIENT
  Age: 77 Year
  Sex: Female

DRUGS (4)
  1. NEURONTIN [Suspect]
     Dosage: UNK
  2. LYRICA [Suspect]
     Indication: NEUROPATHY
     Dosage: 75 mg, UNK
  3. LYRICA [Suspect]
     Dosage: 150 mg, 2x/day
  4. LYRICA [Suspect]
     Dosage: 300 mg, 2x/day

REACTIONS (3)
  - Drug ineffective [Unknown]
  - Neuropathy peripheral [Unknown]
  - Limb discomfort [Unknown]
